FAERS Safety Report 20540591 (Version 1)
Quarter: 2022Q1

REPORT INFORMATION
  Report Type: Spontaneous
  Country: CN (occurrence: CN)
  Receive Date: 20220302
  Receipt Date: 20220302
  Transmission Date: 20220423
  Serious: Yes (Other)
  Sender: FDA-Public Use
  Company Number: CN-GRUNENTHAL-2021-271564

PATIENT
  Age: 63 Year
  Sex: Female
  Weight: 73 kg

DRUGS (1)
  1. TRAMADOL HYDROCHLORIDE [Suspect]
     Active Substance: TRAMADOL HYDROCHLORIDE
     Indication: Analgesic therapy
     Dosage: 0.1 GRAM, 2/DAY
     Route: 048
     Dates: start: 20210917, end: 20211006

REACTIONS (8)
  - Hallucination [Recovering/Resolving]
  - Agitation [Unknown]
  - Delirium [Recovering/Resolving]
  - Adverse event [Unknown]
  - Metastases to bone [Unknown]
  - Cerebral infarction [Unknown]
  - Dementia Alzheimer^s type [Unknown]
  - Speech disorder [Recovering/Resolving]

NARRATIVE: CASE EVENT DATE: 20210930
